FAERS Safety Report 4674765-8 (Version None)
Quarter: 2005Q2

REPORT INFORMATION
  Report Type: 
  Country: None (occurrence: None)
  Receive Date: 20050526
  Receipt Date: 20050517
  Transmission Date: 20051028
  Serious: Yes (Hospitalization)
  Sender: FDA-Public Use
  Company Number: 2005PK00879

PATIENT
  Age: 28 Year
  Sex: Male

DRUGS (2)
  1. BUPIVACAINE 0.5% HYPERBAR [Suspect]
     Indication: ANAESTHESIA
  2. MEPIVACAIN 1% [Concomitant]
     Indication: INFILTRATION ANAESTHESIA

REACTIONS (1)
  - CAUDA EQUINA SYNDROME [None]
